FAERS Safety Report 19433027 (Version 2)
Quarter: 2021Q3

REPORT INFORMATION
  Report Type: Spontaneous
  Country: JP (occurrence: JP)
  Receive Date: 20210617
  Receipt Date: 20210708
  Transmission Date: 20211014
  Serious: Yes (Other)
  Sender: FDA-Public Use
  Company Number: JP-ROCHE-2851818

PATIENT
  Age: 75 Year
  Sex: Male

DRUGS (2)
  1. LUCENTIS [Suspect]
     Active Substance: RANIBIZUMAB
     Indication: AGE-RELATED MACULAR DEGENERATION
     Dosage: LEFT EYE, PRN, ABOUT ONCE IN 3 MONTHS
     Route: 031
     Dates: start: 201903
  2. LUCENTIS [Suspect]
     Active Substance: RANIBIZUMAB
     Dosage: 0.5 MG, PRN, 5 TIMES IN 63 WEEKS
     Route: 031
     Dates: start: 201909

REACTIONS (1)
  - Detachment of retinal pigment epithelium [Unknown]
